FAERS Safety Report 8017532-X (Version None)
Quarter: 2011Q4

REPORT INFORMATION
  Report Type: 
  Country: None (occurrence: None)
  Receive Date: 20111228
  Receipt Date: 20111228
  Transmission Date: 20120403
  Serious: Yes (Other)
  Sender: FDA-Public Use
  Company Number: None

PATIENT
  Sex: Female
  Weight: 71.2147 kg

DRUGS (1)
  1. PRISTIQ [Suspect]
     Indication: FIBROMYALGIA
     Dosage: 1 PER DAY
     Dates: start: 20111024, end: 20111208

REACTIONS (7)
  - DRY MOUTH [None]
  - NAUSEA [None]
  - MEMORY IMPAIRMENT [None]
  - BREAST PAIN [None]
  - NAIL DISORDER [None]
  - SPEECH DISORDER [None]
  - CONSTIPATION [None]
